FAERS Safety Report 4354435-6 (Version None)
Quarter: 2004Q2

REPORT INFORMATION
  Report Type: 
  Country: None (occurrence: None)
  Receive Date: 20040503
  Receipt Date: 20040102
  Transmission Date: 20050107
  Serious: Yes (Hospitalization)
  Sender: FDA-Public Use
  Company Number: PHEH2003US11582

PATIENT
  Age: 69 Year
  Sex: Female

DRUGS (5)
  1. LOTREL [Suspect]
     Indication: HYPERTENSION
     Dosage: 5 MGAMLOD/10 MG BENAZ DAILY
     Dates: start: 20031215, end: 20031221
  2. PLAVIX [Suspect]
  3. NEURONTIN [Suspect]
  4. TRILEPTAL [Suspect]
  5. GLYBURIDE [Suspect]

REACTIONS (1)
  - ANGIONEUROTIC OEDEMA [None]
